FAERS Safety Report 5782285-2 (Version None)
Quarter: 2008Q2

REPORT INFORMATION
  Report Type: 
  Country: None (occurrence: None)
  Receive Date: 20080623
  Receipt Date: 20071026
  Transmission Date: 20081010
  Serious: Yes (Hospitalization)
  Sender: FDA-Public Use
  Company Number: FI-BOEHRINGER INGELHEIM GMBH, GERMANY-2007-BP-05570YA

PATIENT
  Sex: Male
  Weight: 80 kg

DRUGS (3)
  1. TAMSULOSIN OCR [Suspect]
     Indication: BENIGN PROSTATIC HYPERPLASIA
     Route: 048
     Dates: start: 20070222
  2. SOLIFENACIN SUCCINATE [Suspect]
     Indication: BENIGN PROSTATIC HYPERPLASIA
     Route: 065
     Dates: start: 20070222
  3. BETASERC (BETAHISTINE HYDROCHLORIDE) [Concomitant]
     Indication: MENIERE'S DISEASE
     Route: 048
     Dates: start: 19940811

REACTIONS (2)
  - ACUTE MYOCARDIAL INFARCTION [None]
  - CORONARY ARTERY DISEASE [None]
